FAERS Safety Report 18321425 (Version 2)
Quarter: 2020Q4

REPORT INFORMATION
  Report Type: Spontaneous
  Country: EG (occurrence: EG)
  Receive Date: 20200929
  Receipt Date: 20201021
  Transmission Date: 20210113
  Serious: Yes (Life-Threatening)
  Sender: FDA-Public Use
  Company Number: EG-BAXTER-2020BAX019523

PATIENT
  Age: 32 Year
  Sex: Female
  Weight: 60 kg

DRUGS (2)
  1. ENDOXAN 1G [Suspect]
     Active Substance: CYCLOPHOSPHAMIDE
     Indication: AUTOIMMUNE DISORDER
     Dosage: WHITE POWDER, RATE IS 50 ML/ HR, 600 MG ENDOXAN ON 500 ML RINGER WILL BE INFUSED OVER 10 HOURS
     Route: 065
     Dates: start: 20200913, end: 20200913
  2. ENDOXAN 1G [Suspect]
     Active Substance: CYCLOPHOSPHAMIDE
     Indication: VASCULITIS
     Dosage: 7 PREVIOUS DOSES, WHITE POWDER, RATE:50 ML/HR, 600MG ENDOXAN ON 500ML RINGER/NS OVER 10 HR
     Route: 065

REACTIONS (12)
  - Diarrhoea [Recovered/Resolved]
  - Hyperhidrosis [Recovered/Resolved]
  - Headache [Recovered/Resolved]
  - Dizziness [Recovered/Resolved]
  - Nausea [Recovered/Resolved]
  - Dysphagia [Unknown]
  - Pallor [Recovered/Resolved]
  - Dizziness [Not Recovered/Not Resolved]
  - Dyspnoea [Not Recovered/Not Resolved]
  - Hypophagia [Unknown]
  - Malaise [Unknown]
  - Abdominal pain [Recovered/Resolved]

NARRATIVE: CASE EVENT DATE: 20200913
